FAERS Safety Report 7500850-9 (Version None)
Quarter: 2011Q2

REPORT INFORMATION
  Report Type: 
  Country: None (occurrence: None)
  Receive Date: 20110524
  Receipt Date: 20110518
  Transmission Date: 20111010
  Serious: Yes (Other)
  Sender: FDA-Public Use
  Company Number: A0920130A

PATIENT
  Age: 68 Year
  Sex: Male

DRUGS (12)
  1. ATENOLOL [Concomitant]
     Dosage: 100MG PER DAY
  2. ASPIRIN [Concomitant]
     Dosage: 1TAB PER DAY
  3. LANTUS [Concomitant]
     Dosage: 7UNIT AT NIGHT
  4. GLIPIZIDE [Suspect]
     Dosage: 10MG TWICE PER DAY
     Route: 065
  5. LIPITOR [Concomitant]
     Dosage: .5TAB PER DAY
  6. AVANDIA [Suspect]
     Dosage: 8MG PER DAY
     Route: 065
  7. HYDROCHLOROTHIAZIDE [Concomitant]
     Dosage: 25MG TWICE PER DAY
  8. TEMAZ [Concomitant]
     Dosage: 15MG AS REQUIRED
  9. ACTOS [Concomitant]
     Dosage: 45MG PER DAY
  10. VERPAMIL HCL [Concomitant]
     Dosage: 240MG TWICE PER DAY
  11. AVAPRO [Concomitant]
     Dosage: 300MG PER DAY
  12. AMITRIPTYLINE HCL [Concomitant]
     Dosage: 100MG AT NIGHT

REACTIONS (5)
  - DIABETES MELLITUS INADEQUATE CONTROL [None]
  - ESSENTIAL HYPERTENSION [None]
  - HYPERLIPIDAEMIA [None]
  - DRUG INEFFECTIVE [None]
  - MALAISE [None]
